FAERS Safety Report 5085666-8 (Version None)
Quarter: 2006Q3

REPORT INFORMATION
  Report Type: 
  Country: None (occurrence: None)
  Receive Date: 20060822
  Receipt Date: 20060810
  Transmission Date: 20061208
  Serious: Yes (Life-Threatening)
  Sender: FDA-Public Use
  Company Number: JP-JNJFOC-20060800697

PATIENT
  Sex: Female
  Weight: 59 kg

DRUGS (8)
  1. LEVOFLOXACIN [Suspect]
     Indication: NASOPHARYNGITIS
     Route: 048
  2. LEVOFLOXACIN [Suspect]
     Indication: UPPER RESPIRATORY TRACT INFLAMMATION
     Route: 048
  3. MAOUBUSHISAISHINTOU [Concomitant]
     Route: 065
  4. CALONAL [Concomitant]
     Route: 065
  5. HUSCODE [Concomitant]
     Route: 048
  6. HUSCODE [Concomitant]
     Indication: NASOPHARYNGITIS
     Route: 048
  7. BISOLVON [Concomitant]
     Indication: NASOPHARYNGITIS
     Route: 065
     Dates: start: 20060327, end: 20060329
  8. FOSMICIN [Concomitant]
     Indication: NASOPHARYNGITIS
     Route: 041

REACTIONS (1)
  - INTERSTITIAL LUNG DISEASE [None]
